FAERS Safety Report 19460991 (Version 2)
Quarter: 2021Q3

REPORT INFORMATION
  Report Type: Report from Study
  Country: DE (occurrence: DE)
  Receive Date: 20210625
  Receipt Date: 20210702
  Transmission Date: 20211014
  Serious: Yes (Other)
  Sender: FDA-Public Use
  Company Number: DE-AUROBINDO-AUR-APL-2021-026287

PATIENT

DRUGS (5)
  1. PHENYTOIN. [Interacting]
     Active Substance: PHENYTOIN
     Indication: PARTIAL SEIZURES
     Dosage: UNK
     Route: 065
  2. BRIVARACETAM [Interacting]
     Active Substance: BRIVARACETAM
     Indication: PARTIAL SEIZURES
     Dosage: UNK
     Route: 065
  3. LAMOTRIGINE. [Suspect]
     Active Substance: LAMOTRIGINE
     Indication: PARTIAL SEIZURES
     Dosage: UNK
     Route: 065
  4. PERAMPANEL [Interacting]
     Active Substance: PERAMPANEL
     Indication: PARTIAL SEIZURES
     Dosage: 4 MILLIGRAM, ONCE A DAY (AT BEDTIME)
     Route: 048
  5. LACOSAMIDE. [Interacting]
     Active Substance: LACOSAMIDE
     Indication: PARTIAL SEIZURES
     Dosage: UNK
     Route: 065

REACTIONS (2)
  - Drug interaction [Unknown]
  - Drug clearance increased [Unknown]
